FAERS Safety Report 6180814-0 (Version None)
Quarter: 2009Q2

REPORT INFORMATION
  Report Type: 
  Country: None (occurrence: None)
  Receive Date: 20090430
  Receipt Date: 20090128
  Transmission Date: 20091009
  Serious: Yes (Other)
  Sender: FDA-Public Use
  Company Number: US025370

PATIENT
  Sex: Male

DRUGS (1)
  1. AMRIX [Suspect]
     Dosage: 15 MG (15 MG, 1 IN 1 D), ORAL
     Route: 048

REACTIONS (2)
  - CONVULSION [None]
  - DYSARTHRIA [None]
